FAERS Safety Report 4365884-4 (Version None)
Quarter: 2004Q2

REPORT INFORMATION
  Report Type: 
  Country: None (occurrence: None)
  Receive Date: 20040527
  Receipt Date: 20040513
  Transmission Date: 20050107
  Serious: Yes (Hospitalization)
  Sender: FDA-Public Use
  Company Number: 200411696JP

PATIENT
  Age: 60 Year
  Sex: Female
  Weight: 45 kg

DRUGS (9)
  1. ARAVA [Suspect]
     Indication: RHEUMATOID ARTHRITIS
     Route: 048
     Dates: start: 20031108, end: 20040321
  2. PREDONINE [Concomitant]
  3. GASTROM [Concomitant]
  4. CALSLOT [Concomitant]
  5. ALFAROL [Concomitant]
  6. THYRADIN S [Concomitant]
  7. FLUITRAN [Concomitant]
  8. JUVELA NICOTINATE [Concomitant]
  9. URSO [Concomitant]

REACTIONS (5)
  - ALANINE AMINOTRANSFERASE INCREASED [None]
  - ASPARTATE AMINOTRANSFERASE INCREASED [None]
  - HEPATIC FUNCTION ABNORMAL [None]
  - JAUNDICE [None]
  - MALAISE [None]
